FAERS Safety Report 5911391-4 (Version None)
Quarter: 2008Q4

REPORT INFORMATION
  Report Type: 
  Country: None (occurrence: None)
  Receive Date: 20081002
  Receipt Date: 20080924
  Transmission Date: 20090506
  Serious: Yes (Other)
  Sender: FDA-Public Use
  Company Number: JPI-P-004835

PATIENT
  Age: 29 Year
  Sex: Female

DRUGS (3)
  1. XYREM (OXYBATE SODIUM) (500 MILLIGRAM/MILLILITERS,SOLUTION) (SODIUM OX [Suspect]
     Indication: CATAPLEXY
     Dosage: ORAL, 7.5 GM (3.75 GM, 2 IN 1 D), ORAL
     Route: 048
     Dates: start: 20060101
  2. XYREM (OXYBATE SODIUM) (500 MILLIGRAM/MILLILITERS,SOLUTION) (SODIUM OX [Suspect]
     Indication: NARCOLEPSY
     Dosage: ORAL, 7.5 GM (3.75 GM, 2 IN 1 D), ORAL
     Route: 048
     Dates: start: 20060101
  3. AMPHETAMINE SULFATE [Concomitant]

REACTIONS (5)
  - FLUID RETENTION [None]
  - GLUCOSE TOLERANCE IMPAIRED [None]
  - POLYCYSTIC OVARIES [None]
  - POOR QUALITY SLEEP [None]
  - WEIGHT INCREASED [None]
